FAERS Safety Report 8396394-5 (Version None)
Quarter: 2012Q1

REPORT INFORMATION
  Report Type: 
  Country: None (occurrence: None)
  Receive Date: 20120323
  Receipt Date: 20110330
  Transmission Date: 20120608
  Serious: Yes (Other)
  Sender: FDA-Public Use
  Company Number: 163-21880-11033633

PATIENT
  Age: 85 Year
  Sex: Male

DRUGS (1)
  1. REVLIMID [Suspect]
     Indication: MULTIPLE MYELOMA
     Dosage: 25 MG, DAILY FOR 21 OUT OF 28 DAYS, PO
     Route: 048
     Dates: start: 20110319, end: 20110330

REACTIONS (2)
  - OEDEMA PERIPHERAL [None]
  - SKIN EXFOLIATION [None]
